FAERS Safety Report 19670336 (Version 1)
Quarter: 2021Q3

REPORT INFORMATION
  Report Type: Spontaneous
  Country: US (occurrence: US)
  Receive Date: 20210806
  Receipt Date: 20210806
  Transmission Date: 20211014
  Serious: No
  Sender: FDA-Public Use
  Company Number: US-SAOL THERAPEUTICS-2021SAO00137

PATIENT
  Age: 21 Year
  Sex: Male

DRUGS (1)
  1. LIORESAL [Suspect]
     Active Substance: BACLOFEN
     Dosage: 818 ?G, \DAY
     Route: 037

REACTIONS (2)
  - Soft tissue injury [Unknown]
  - Lethargy [Unknown]

NARRATIVE: CASE EVENT DATE: 20210404
